FAERS Safety Report 8997923 (Version 1)
Quarter: 2013Q1

REPORT INFORMATION
  Report Type: Spontaneous
  Country: JP (occurrence: JP)
  Receive Date: 20130104
  Receipt Date: 20130104
  Transmission Date: 20140127
  Serious: Yes (Death, Hospitalization, Other)
  Sender: FDA-Public Use
  Company Number: JP-ROCHE-1174555

PATIENT
  Age: 60 Year
  Sex: Female
  Weight: 48 kg

DRUGS (3)
  1. AVASTIN [Suspect]
     Indication: COLON CANCER METASTATIC
     Route: 041
     Dates: start: 20120417, end: 20120619
  2. GOSHA-JINKI-GAN [Concomitant]
     Indication: COLON CANCER METASTATIC
     Route: 048
     Dates: start: 20120417, end: 20120706
  3. EMEND [Concomitant]
     Indication: COLON CANCER METASTATIC
     Route: 048
     Dates: start: 20120417, end: 20120820

REACTIONS (6)
  - Intestinal perforation [Fatal]
  - Abdominal abscess [Unknown]
  - Axillary vein thrombosis [Unknown]
  - Pleural effusion [Unknown]
  - Peritonitis [Fatal]
  - Colon cancer [Fatal]
